FAERS Safety Report 22116819 (Version 5)
Quarter: 2023Q4

REPORT INFORMATION
  Report Type: Report from Study
  Country: US (occurrence: US)
  Receive Date: 20230320
  Receipt Date: 20231017
  Transmission Date: 20240109
  Serious: Yes (Other)
  Sender: FDA-Public Use
  Company Number: US-BAUSCH-BL-2022-020769

PATIENT
  Age: 79 Year
  Sex: Female
  Weight: 113.77 kg

DRUGS (29)
  1. XIFAXAN [Suspect]
     Active Substance: RIFAXIMIN
     Indication: Haemochromatosis
     Route: 048
     Dates: end: 20220818
  2. XIFAXAN [Suspect]
     Active Substance: RIFAXIMIN
     Indication: Hepatic fibrosis
     Route: 048
     Dates: end: 2023
  3. XIFAXAN [Suspect]
     Active Substance: RIFAXIMIN
     Dosage: START DATE: //2023
     Route: 048
     Dates: end: 202302
  4. XIFAXAN [Suspect]
     Active Substance: RIFAXIMIN
     Dosage: START DATE: //2023
     Route: 065
     Dates: end: 20230619
  5. LACTULOSE [Concomitant]
     Active Substance: LACTULOSE
     Indication: Product used for unknown indication
     Dosage: 20 GRAM/30 ML
  6. VENLAFAXINE [Concomitant]
     Active Substance: VENLAFAXINE HYDROCHLORIDE
     Indication: Product used for unknown indication
     Dosage: TAKE 1 CAPSULE BY MOUTH ONCE A DAY WITH 150 MG TABLET,
     Route: 048
  7. LEVOTHYROXINE [Concomitant]
     Active Substance: LEVOTHYROXINE
     Indication: Product used for unknown indication
     Dosage: TAKE 1 TABLET BY MOUTH ONCE A DAY,
     Route: 048
  8. VOLTAREN ARTHRITIS PAIN [Concomitant]
     Active Substance: DICLOFENAC SODIUM
     Indication: Product used for unknown indication
     Dosage: 1% GEL APPLY A SMALL AMOUNT TO AFFECTED AREA ONCE A DAY AS NEEDED,
  9. MIRALAX [Concomitant]
     Active Substance: POLYETHYLENE GLYCOL 3350
     Indication: Product used for unknown indication
     Dosage: TAKE 1 SCOOP DISSOLVED IN WATER ONCE A DAY,
  10. OMEPRAZOLE [Concomitant]
     Active Substance: OMEPRAZOLE
     Indication: Product used for unknown indication
     Dosage: TAKE 1 TABLET BY MOUTH TWICE A DAY TAKE 30-60 MINUTES PRIOR TO EATING,
     Route: 048
  11. ALBUTEROL SULFATE [Concomitant]
     Active Substance: ALBUTEROL SULFATE
     Indication: Product used for unknown indication
     Dosage: HFA (HYDROFLUOROALKANE INHALERS) INHALE 2 PULFF USING INHALER FOUR TIMES A DAY,
  12. COREG [Concomitant]
     Active Substance: CARVEDILOL
     Indication: Product used for unknown indication
     Dosage: TAKE 1 TABLET BY MOUTH TWICE A DAY
     Route: 048
  13. SINEMET [Concomitant]
     Active Substance: CARBIDOPA\LEVODOPA
     Indication: Product used for unknown indication
     Dosage: 25-100 MG TABLET TAKE 1 TABLET BY MOUTH FOUR TIMES. A DAY,
     Route: 048
  14. LOSARTAN [Concomitant]
     Active Substance: LOSARTAN
     Indication: Product used for unknown indication
     Dosage: TAKE 1 TABLET BY MOUTH ONCE A DAY
     Route: 048
  15. ROSUVASTATIN [Concomitant]
     Active Substance: ROSUVASTATIN
     Indication: Product used for unknown indication
     Dosage: TAKE 1 TABLET BY MOUTH ONCE A DAY,
     Route: 048
  16. POTASSIUM CHLORIDE [Concomitant]
     Active Substance: POTASSIUM CHLORIDE
     Indication: Product used for unknown indication
     Dosage: TABLET EXTENDED RELEASE TAKE 1 TABLET BY MOUTH ONCE A DAY, K-TAB
     Route: 048
  17. CONSTULOSE [Concomitant]
     Active Substance: LACTULOSE
     Indication: Product used for unknown indication
     Dosage: 10 GRAM/16 ML SOLUTION TAKE 30 ML BY MOUTH THREE TIMES A DAY
     Route: 048
  18. PLAVIX [Concomitant]
     Active Substance: CLOPIDOGREL BISULFATE
     Indication: Product used for unknown indication
     Dosage: TAKE 1 TABLET BY MOUTH ONCE A DAY,
     Route: 048
  19. VITAMIN D3 [Concomitant]
     Active Substance: CHOLECALCIFEROL
     Indication: Product used for unknown indication
     Dosage: (2,000 UNIT) TABLET TAKE 2 TABLET BY MOUTH ONCE A DAY,
     Route: 048
  20. VITAMIN C [Concomitant]
     Active Substance: ASCORBIC ACID
     Indication: Product used for unknown indication
     Dosage: TAKE 1 TABLET BY MOUTH ONCE A DAY,
     Route: 048
  21. CALCIUM [Concomitant]
     Active Substance: CALCIUM
     Indication: Product used for unknown indication
     Dosage: CALCIUM 500 WITH D 600 MG-10 MCG (400 UNIT) TABLET TAKE 1 TABLET BY MOUTH ONCE A DAY,
     Route: 048
  22. PROBIOTICS NOS;TRANS-GALACTOOLIGOSACCHARIDE;ZINC [Concomitant]
     Indication: Product used for unknown indication
     Dosage: TAKE 1 CAPSULE BY MOUTH ONCE A DAY,
     Route: 048
  23. ZINC ACETATE [Concomitant]
     Active Substance: ZINC ACETATE
     Indication: Product used for unknown indication
     Dosage: TAKE 1 CAPSULE BY MOUTH ONCE A DAY,
     Route: 048
  24. NIACIN [Concomitant]
     Active Substance: NIACIN
     Dosage: POWDER AS DIRECTED
  25. METHYLPREDNISOLONE [Concomitant]
     Active Substance: METHYLPREDNISOLONE
     Indication: Product used for unknown indication
     Dosage: TAKE 2 TABLET BY MOUTH SINGLE DOSE TAKE 2 TABLETS PO 12 HRS.
     Route: 048
  26. ALDACTONE [Concomitant]
     Active Substance: SPIRONOLACTONE
     Indication: Product used for unknown indication
     Dosage: TAKE 1 TABLET BY MOUTH ONCE A DAY
     Route: 048
  27. TORSEMIDE [Concomitant]
     Active Substance: TORSEMIDE
     Indication: Product used for unknown indication
     Dosage: TAKE 1 TABLET BY MOUTH ONCE A DAY.
     Route: 048
  28. PNEUMOVAX 23 [Concomitant]
     Active Substance: PNEUMOCOCCAL VACCINE, POLYVALENT 23
     Indication: Pneumococcal immunisation
     Dates: start: 20171016
  29. TETANUS TOXOID ADSORBED (VACCINE) [Concomitant]
     Active Substance: CLOSTRIDIUM TETANI TOXOID ANTIGEN (FORMALDEHYDE INACTIVATED)
     Indication: Tetanus immunisation
     Dosage: WITHIN 10 YRS

REACTIONS (11)
  - Parathyroid tumour [Unknown]
  - Haematochezia [Unknown]
  - Serum ferritin increased [Unknown]
  - Urinary incontinence [Unknown]
  - Dysphagia [Unknown]
  - Weight decreased [Unknown]
  - Dyspepsia [Unknown]
  - Fatigue [Unknown]
  - Abdominal pain [Unknown]
  - Product use issue [Unknown]
  - Product supply issue [Unknown]

NARRATIVE: CASE EVENT DATE: 20220818
